FAERS Safety Report 6959539-7 (Version None)
Quarter: 2010Q3

REPORT INFORMATION
  Report Type: 
  Country: None (occurrence: None)
  Receive Date: 20100827
  Receipt Date: 20100817
  Transmission Date: 20110219
  Serious: Yes (Death, Hospitalization)
  Sender: FDA-Public Use
  Company Number: 2010MA001892

PATIENT
  Sex: Male

DRUGS (4)
  1. TRAMADOL HCL [Suspect]
     Indication: BACK PAIN
     Dates: start: 20090211
  2. CARBIDOPA AND LEVODOPA [Suspect]
     Indication: PARKINSON'S DISEASE
  3. CON MEDS [Concomitant]
  4. PREV MEDS [Concomitant]

REACTIONS (5)
  - DEEP VEIN THROMBOSIS [None]
  - DRUG INTERACTION [None]
  - GENERAL PHYSICAL HEALTH DETERIORATION [None]
  - MENINGITIS [None]
  - PULMONARY EMBOLISM [None]
